FAERS Safety Report 11499951 (Version 1)
Quarter: 2015Q3

REPORT INFORMATION
  Report Type: Spontaneous
  Country: US (occurrence: None)
  Receive Date: 20150911
  Receipt Date: 20150911
  Transmission Date: 20151125
  Serious: No
  Sender: FDA-Public Use
  Company Number: None

PATIENT
  Sex: Female

DRUGS (3)
  1. METHOTREXATE [Concomitant]
     Active Substance: METHOTREXATE
  2. ENBREL [Concomitant]
     Active Substance: ETANERCEPT
  3. CAPECITABINE. [Suspect]
     Active Substance: CAPECITABINE
     Indication: PSORIATIC ARTHROPATHY
     Dosage: FOR 14 DS
     Route: 048
     Dates: start: 20150728

REACTIONS (1)
  - Drug dose omission [None]
